FAERS Safety Report 24235287 (Version 4)
Quarter: 2025Q1

REPORT INFORMATION
  Report Type: Report from Study
  Country: US (occurrence: US)
  Receive Date: 20240821
  Receipt Date: 20250110
  Transmission Date: 20250409
  Serious: No
  Sender: SUNOVION
  Company Number: US-SUMITOMO PHARMA SWITZERLAND GMBH-2024SPA000417

PATIENT

DRUGS (11)
  1. ORGOVYX [Suspect]
     Active Substance: RELUGOLIX
     Indication: Prostate cancer
     Dosage: 360 MG, SINGLE
     Route: 048
     Dates: start: 20240618, end: 20240618
  2. ORGOVYX [Suspect]
     Active Substance: RELUGOLIX
     Dosage: 120 MG, QD
     Route: 048
     Dates: start: 20240619
  3. OXYBUTYNIN [Suspect]
     Active Substance: OXYBUTYNIN
     Route: 065
  4. ERLEADA [Concomitant]
     Active Substance: APALUTAMIDE
     Route: 065
  5. ASPIRIN [Concomitant]
     Active Substance: ASPIRIN
  6. ATORVASTATIN CALCIUM [Concomitant]
     Active Substance: ATORVASTATIN CALCIUM
  7. CARVEDILOL [Concomitant]
     Active Substance: CARVEDILOL
  8. HYDROCHLOROTHIAZIDE [Concomitant]
     Active Substance: HYDROCHLOROTHIAZIDE
  9. LISINOPRIL AND HYDROCHLOROTHIAZIDE [Concomitant]
     Active Substance: HYDROCHLOROTHIAZIDE\LISINOPRIL
  10. XARELTO [Concomitant]
     Active Substance: RIVAROXABAN
  11. ZETIA [Concomitant]
     Active Substance: EZETIMIBE

REACTIONS (7)
  - Urinary incontinence [Recovering/Resolving]
  - Pollakiuria [Unknown]
  - Frequent bowel movements [Recovering/Resolving]
  - Asthenia [Unknown]
  - Feeling hot [Recovering/Resolving]
  - Fatigue [Unknown]
  - Product dose omission issue [Unknown]
